FAERS Safety Report 8170984-7 (Version None)
Quarter: 2012Q1

REPORT INFORMATION
  Report Type: 
  Country: None (occurrence: None)
  Receive Date: 20120228
  Receipt Date: 20120224
  Transmission Date: 20120608
  Serious: No
  Sender: FDA-Public Use
  Company Number: US-TEVA-324773USA

PATIENT
  Sex: Female
  Weight: 53.572 kg

DRUGS (1)
  1. PLAN B ONE-STEP [Suspect]
     Indication: POST COITAL CONTRACEPTION
     Dosage: 1.5 MILLIGRAM;
     Route: 048
     Dates: start: 20120119, end: 20120119

REACTIONS (5)
  - NAUSEA [None]
  - VAGINAL DISCHARGE [None]
  - MENSTRUATION IRREGULAR [None]
  - MENSTRUATION DELAYED [None]
  - DIZZINESS [None]
